FAERS Safety Report 9046094 (Version 1)
Quarter: 2013Q1

REPORT INFORMATION
  Report Type: Spontaneous
  Country: US (occurrence: US)
  Receive Date: 20130201
  Receipt Date: 20130201
  Transmission Date: 20140127
  Serious: No
  Sender: FDA-Public Use
  Company Number: US-BIOGENIDEC-2013BI008674

PATIENT
  Age: 61 Year
  Sex: Female

DRUGS (1)
  1. TYSABRI [Suspect]
     Indication: MULTIPLE SCLEROSIS
     Route: 042
     Dates: start: 20110921

REACTIONS (8)
  - Sensation of heaviness [Recovered/Resolved]
  - Sciatic nerve neuropathy [Recovered/Resolved]
  - Stress [Recovered/Resolved]
  - Blood glucose increased [Recovered/Resolved]
  - Diabetes mellitus [Not Recovered/Not Resolved]
  - Alopecia [Not Recovered/Not Resolved]
  - Urinary tract infection [Recovered/Resolved]
  - Fatigue [Recovered/Resolved]
